FAERS Safety Report 7581674-3 (Version None)
Quarter: 2011Q2

REPORT INFORMATION
  Report Type: 
  Country: None (occurrence: None)
  Receive Date: 20110629
  Receipt Date: 20110627
  Transmission Date: 20111010
  Serious: Yes (Other)
  Sender: FDA-Public Use
  Company Number: US-PFIZER INC-2011142826

PATIENT
  Sex: Female

DRUGS (4)
  1. MAGNESIUM [Concomitant]
     Dosage: UNK
  2. CALCIUM [Concomitant]
     Dosage: UNK
  3. FIBERCON [Suspect]
     Indication: DIARRHOEA
     Dosage: 2 MG, 3X/DAY
     Route: 048
     Dates: start: 19950101
  4. NICOTINIC ACID AMIDE [Concomitant]
     Dosage: UNK

REACTIONS (1)
  - COELIAC DISEASE [None]
